FAERS Safety Report 16380891 (Version 1)
Quarter: 2019Q2

REPORT INFORMATION
  Report Type: Spontaneous
  Country: US (occurrence: US)
  Receive Date: 20190602
  Receipt Date: 20190602
  Transmission Date: 20190711
  Serious: No
  Sender: FDA-Public Use
  Company Number: US-JNJFOC-20190523263

PATIENT
  Sex: Male
  Weight: 73.48 kg

DRUGS (2)
  1. MENS ROGAINE EXTRA STRENGTH UNSCENTED [Suspect]
     Active Substance: MINOXIDIL
     Route: 061
  2. MENS ROGAINE EXTRA STRENGTH UNSCENTED [Suspect]
     Active Substance: MINOXIDIL
     Indication: ALOPECIA
     Dosage: ABOUT HALF CAPFUL
     Route: 061
     Dates: end: 201812

REACTIONS (6)
  - Pruritus [Recovered/Resolved]
  - Secretion discharge [Recovered/Resolved]
  - Underdose [Unknown]
  - Expired product administered [Unknown]
  - Erythema [Recovered/Resolved]
  - Inappropriate schedule of product administration [Unknown]
